FAERS Safety Report 5793557-X (Version None)
Quarter: 2008Q2

REPORT INFORMATION
  Report Type: 
  Country: None (occurrence: None)
  Receive Date: 20080627
  Receipt Date: 20080616
  Transmission Date: 20081010
  Serious: Yes (Other)
  Sender: FDA-Public Use
  Company Number: US-JNJFOC-20080604617

PATIENT
  Age: 50 Year
  Sex: Female
  Weight: 77.11 kg

DRUGS (4)
  1. TYLENOL SORE THROAT NIGHT COOLBURST [Suspect]
     Indication: PHARYNGOLARYNGEAL PAIN
     Route: 048
  2. TYLENOL SORE THROAT NIGHT COOLBURST [Suspect]
     Indication: INFLUENZA
     Dosage: FOR 4 NIGHTS
     Route: 048
  3. TYLENOL EXTRA STRENGTH [Concomitant]
  4. KEFLEX [Concomitant]
     Indication: INFLUENZA
     Dosage: 2 TIMES/DAY FOR 10 DAYS

REACTIONS (1)
  - THROAT TIGHTNESS [None]
